FAERS Safety Report 24327340 (Version 1)
Quarter: 2024Q3

REPORT INFORMATION
  Report Type: Spontaneous
  Country: CN (occurrence: CN)
  Receive Date: 20240917
  Receipt Date: 20240917
  Transmission Date: 20241017
  Serious: Yes (Hospitalization)
  Sender: CHEPLAPHARM
  Company Number: CN-CHEPLA-2024011815

PATIENT
  Age: 22 Year
  Sex: Male

DRUGS (3)
  1. OLANZAPINE [Suspect]
     Active Substance: OLANZAPINE
     Dates: start: 20220302
  2. OXAZEPAM [Suspect]
     Active Substance: OXAZEPAM
     Dates: start: 20220302, end: 20220302
  3. ESCITALOPRAM [Suspect]
     Active Substance: ESCITALOPRAM OXALATE
     Dates: start: 20220302, end: 20220302

REACTIONS (7)
  - Coma [Unknown]
  - Somnolence [Recovering/Resolving]
  - Agitation [Unknown]
  - Sinus tachycardia [Unknown]
  - Oliguria [Unknown]
  - Cough [Unknown]
  - Overdose [Recovering/Resolving]

NARRATIVE: CASE EVENT DATE: 20220302
